FAERS Safety Report 20016431 (Version 1)
Quarter: 2021Q4

REPORT INFORMATION
  Report Type: Spontaneous
  Country: US (occurrence: None)
  Receive Date: 20211103
  Receipt Date: 20211103
  Transmission Date: 20220303
  Serious: Yes (Death)
  Sender: FDA-Public Use
  Company Number: None

PATIENT
  Sex: Female

DRUGS (2)
  1. CAPECITABINE [Suspect]
     Active Substance: CAPECITABINE
     Indication: Ductal adenocarcinoma of pancreas
     Dosage: OTHER FREQUENCY : BID 21 OF 28 DAYS;?
     Route: 048
  2. CAPECITABINE [Suspect]
     Active Substance: CAPECITABINE
     Indication: Ductal adenocarcinoma of pancreas
     Dosage: OTHER FREQUENCY : BID 21 OF28DAYS;?
     Route: 048

REACTIONS (1)
  - Death [None]
